FAERS Safety Report 19468833 (Version 2)
Quarter: 2021Q3

REPORT INFORMATION
  Report Type: Spontaneous
  Country: JP (occurrence: JP)
  Receive Date: 20210628
  Receipt Date: 20210712
  Transmission Date: 20211014
  Serious: Yes (Other)
  Sender: FDA-Public Use
  Company Number: JP-INCYTE CORPORATION-2021IN005625

PATIENT

DRUGS (9)
  1. JAKAVI [Suspect]
     Active Substance: RUXOLITINIB
     Dosage: 20 MG, UNKNOWN
     Route: 048
  2. JAKAVI [Suspect]
     Active Substance: RUXOLITINIB
     Dosage: 15 MG, UNKNOWN
     Route: 048
  3. JAKAVI [Suspect]
     Active Substance: RUXOLITINIB
     Dosage: UNK
     Route: 048
  4. JAKAVI [Suspect]
     Active Substance: RUXOLITINIB
     Indication: MYELOFIBROSIS
     Dosage: 10 MG, UNKNOWN
     Route: 048
  5. JAKAVI [Suspect]
     Active Substance: RUXOLITINIB
     Dosage: UNK
     Route: 048
  6. JAKAVI [Suspect]
     Active Substance: RUXOLITINIB
     Dosage: UNK
     Route: 048
  7. JAKAVI [Suspect]
     Active Substance: RUXOLITINIB
     Dosage: UNK
     Route: 048
  8. JAKAVI [Suspect]
     Active Substance: RUXOLITINIB
     Dosage: UNK
     Route: 048
  9. DANAZOL. [Concomitant]
     Active Substance: DANAZOL
     Indication: ANAEMIA
     Dosage: UNK
     Route: 065

REACTIONS (5)
  - Platelet count increased [Unknown]
  - Second primary malignancy [Unknown]
  - Endometrial cancer [Unknown]
  - White blood cell count increased [Unknown]
  - Blast cell count increased [Unknown]
